FAERS Safety Report 6015955-1 (Version None)
Quarter: 2008Q4

REPORT INFORMATION
  Report Type: 
  Country: None (occurrence: None)
  Receive Date: 20081219
  Receipt Date: 20081219
  Transmission Date: 20090506
  Serious: Yes (Other)
  Sender: FDA-Public Use
  Company Number: None

PATIENT
  Age: 32 Year
  Sex: Female
  Weight: 81.6475 kg

DRUGS (1)
  1. REMBRANDT 2-HOUR WHITENING [Suspect]
     Indication: DENTAL CARE
     Dosage: 060 ORAL
     Route: 048
     Dates: start: 20081106, end: 20081106

REACTIONS (4)
  - GINGIVAL PAIN [None]
  - HYPOPHAGIA [None]
  - LIP EXFOLIATION [None]
  - TONGUE DISORDER [None]
